FAERS Safety Report 23532419 (Version 1)
Quarter: 2024Q1

REPORT INFORMATION
  Report Type: Spontaneous
  Country: US (occurrence: None)
  Receive Date: 20240215
  Receipt Date: 20240215
  Transmission Date: 20240409
  Serious: No
  Sender: FDA-Public Use
  Company Number: None

PATIENT
  Sex: Female

DRUGS (1)
  1. ASCENIV [Suspect]
     Active Substance: HUMAN IMMUNOGLOBULIN G
     Dosage: 60 GM  EVERY 3 WEEKS ITRAAVENOUS?
     Route: 042

REACTIONS (5)
  - Dizziness [None]
  - Chest discomfort [None]
  - Dizziness [None]
  - Pneumonia bacterial [None]
  - Infusion related reaction [None]

NARRATIVE: CASE EVENT DATE: 20240201
